FAERS Safety Report 20629501 (Version 1)
Quarter: 2022Q1

REPORT INFORMATION
  Report Type: Report from Study
  Country: IE (occurrence: IE)
  Receive Date: 20220323
  Receipt Date: 20220323
  Transmission Date: 20220423
  Serious: Yes (Other)
  Sender: FDA-Public Use
  Company Number: IE-MYLANLABS-2022M1021971

PATIENT

DRUGS (1)
  1. DOXORUBICIN [Suspect]
     Active Substance: DOXORUBICIN
     Indication: Anaplastic thyroid cancer
     Dosage: 10 MILLIGRAM/SQ. METER, QW, 7 CYCLES
     Route: 042

REACTIONS (4)
  - Anaemia [Unknown]
  - Dysphagia [Unknown]
  - Dermatitis [Unknown]
  - Fatigue [Unknown]
